FAERS Safety Report 10645577 (Version 2)
Quarter: 2014Q4

REPORT INFORMATION
  Report Type: Spontaneous
  Country: FR (occurrence: FR)
  Receive Date: 20141211
  Receipt Date: 20141219
  Transmission Date: 20150529
  Serious: Yes (Hospitalization)
  Sender: FDA-Public Use
  Company Number: FR-009507513-1412FRA001308

PATIENT
  Age: 80 Year
  Sex: Female

DRUGS (10)
  1. INEGY [Suspect]
     Active Substance: EZETIMIBE\SIMVASTATIN
     Indication: DYSLIPIDAEMIA
     Dosage: 1 DF, QD
     Route: 048
  2. PREVISCAN [Suspect]
     Active Substance: FLUINDIONE
     Indication: ATRIAL FIBRILLATION
     Dosage: 1 DF, QD
     Route: 048
     Dates: start: 20140329, end: 20141025
  3. FOSAMAX [Concomitant]
     Active Substance: ALENDRONATE SODIUM
     Indication: OSTEOPOROSIS
     Dosage: 1 DF, QW
     Route: 048
  4. OFLOXACIN. [Interacting]
     Active Substance: OFLOXACIN
     Indication: PROPHYLAXIS
     Dosage: 200 MG, ONCE
     Route: 048
     Dates: start: 20140913, end: 20140913
  5. HYDROCHLOROTHIAZIDE (+) VALSARTAN [Concomitant]
     Active Substance: HYDROCHLOROTHIAZIDE\VALSARTAN
     Indication: HYPERTENSION
     Dosage: 1 DF, QD, ARROW
     Route: 048
     Dates: start: 20130124
  6. HELICIDINE [Suspect]
     Active Substance: ESCARGOT
     Indication: COUGH
     Dosage: 2 SOUP SPOONS, TID
     Route: 048
     Dates: start: 20141007, end: 20141014
  7. DOLIPRANE [Interacting]
     Active Substance: ACETAMINOPHEN
     Indication: PYREXIA
     Dosage: UNK, PRN
     Dates: start: 20141007, end: 20141014
  8. LEVOTHYROX [Concomitant]
     Active Substance: LEVOTHYROXINE
     Indication: HYPOTHYROIDISM
     Dosage: 75 MICROGRAM, QD
     Route: 048
     Dates: start: 20130124
  9. CEFPODOXIME PROXETIL. [Interacting]
     Active Substance: CEFPODOXIME PROXETIL
     Indication: LUNG INFECTION
     Dosage: 100 MG, BID
     Route: 048
     Dates: start: 20141007, end: 20141014
  10. CACIT VITAMINE D3 [Concomitant]
     Active Substance: CALCIUM CARBONATE\CHOLECALCIFEROL
     Indication: OSTEOPOROSIS
     Dosage: 1 DF, QD
     Route: 048

REACTIONS (1)
  - Cerebrovascular accident [Unknown]

NARRATIVE: CASE EVENT DATE: 20141025
